FAERS Safety Report 16720905 (Version 4)
Quarter: 2019Q3

REPORT INFORMATION
  Report Type: Spontaneous
  Country: JP (occurrence: JP)
  Receive Date: 20190820
  Receipt Date: 20190823
  Transmission Date: 20191005
  Serious: Yes (Hospitalization, Other)
  Sender: FDA-Public Use
  Company Number: PHJP2019JP010428

PATIENT
  Age: 32 Year
  Sex: Female

DRUGS (7)
  1. PREDNISOLONE. [Suspect]
     Active Substance: PREDNISOLONE
     Indication: SYSTEMIC LUPUS ERYTHEMATOSUS
     Dosage: 16 MG, QD
     Route: 048
  2. RITUXIMAB. [Suspect]
     Active Substance: RITUXIMAB
     Indication: SYSTEMIC LUPUS ERYTHEMATOSUS
     Dosage: UNK
     Route: 065
  3. MYCOPHENOLATE MOFETIL. [Suspect]
     Active Substance: MYCOPHENOLATE MOFETIL
     Indication: SYSTEMIC LUPUS ERYTHEMATOSUS
     Dosage: 2000 MG, UNK
     Route: 048
  4. PREDNISOLONE. [Suspect]
     Active Substance: PREDNISOLONE
     Dosage: 60 MG, UNK
     Route: 048
  5. PREDNISOLONE. [Suspect]
     Active Substance: PREDNISOLONE
     Dosage: 30 MG, UNK
     Route: 048
  6. CICLOSPORIN [Suspect]
     Active Substance: CYCLOSPORINE
     Indication: SYSTEMIC LUPUS ERYTHEMATOSUS
     Dosage: 200 MG, QD
     Route: 048
  7. AZATHIOPRINE. [Suspect]
     Active Substance: AZATHIOPRINE
     Indication: SYSTEMIC LUPUS ERYTHEMATOSUS
     Dosage: 25 MG, QD
     Route: 048

REACTIONS (21)
  - Disseminated intravascular coagulation [Unknown]
  - Renal impairment [Recovering/Resolving]
  - Maternal exposure during pregnancy [Unknown]
  - Product use in unapproved indication [Unknown]
  - Pyrexia [Recovering/Resolving]
  - Anaemia [Recovering/Resolving]
  - Renal hypertension [Not Recovered/Not Resolved]
  - Coagulopathy [Unknown]
  - Haemolytic anaemia [Unknown]
  - Multi-organ disorder [Unknown]
  - Inflammation [Unknown]
  - Blood lactate dehydrogenase increased [Unknown]
  - Thrombotic microangiopathy [Recovering/Resolving]
  - Cervical incompetence [Unknown]
  - Blood creatinine increased [Recovering/Resolving]
  - Premature rupture of membranes [Unknown]
  - Haptoglobin decreased [Unknown]
  - Aspartate aminotransferase increased [Recovering/Resolving]
  - Platelet count decreased [Recovering/Resolving]
  - Retained placenta or membranes [Unknown]
  - Postpartum haemorrhage [Unknown]
